FAERS Safety Report 15707198 (Version 1)
Quarter: 2018Q4

REPORT INFORMATION
  Report Type: Report from Study
  Country: CO (occurrence: CO)
  Receive Date: 20181210
  Receipt Date: 20181210
  Transmission Date: 20190205
  Serious: Yes (Death)
  Sender: FDA-Public Use
  Company Number: PHHY2018CO063957

PATIENT
  Age: 80 Year
  Sex: Female
  Weight: 95 kg

DRUGS (2)
  1. AFINITOR [Suspect]
     Active Substance: EVEROLIMUS
     Indication: BREAST CANCER
     Dosage: 10 MG, QD
     Route: 048
     Dates: start: 20180626
  2. AFINITOR [Suspect]
     Active Substance: EVEROLIMUS
     Dosage: 10 MG, QD
     Route: 048
     Dates: end: 20181129

REACTIONS (4)
  - Cardiomegaly [Fatal]
  - Oral mucosal blistering [Unknown]
  - Cardiac arrest [Fatal]
  - Skin discolouration [Unknown]

NARRATIVE: CASE EVENT DATE: 20181130
